FAERS Safety Report 7554534-1 (Version None)
Quarter: 2011Q2

REPORT INFORMATION
  Report Type: 
  Country: None (occurrence: None)
  Receive Date: 20110617
  Receipt Date: 20110609
  Transmission Date: 20111010
  Serious: Yes (Hospitalization)
  Sender: FDA-Public Use
  Company Number: B0726903A

PATIENT
  Sex: Male

DRUGS (4)
  1. LAMICTAL [Suspect]
     Route: 048
     Dates: start: 20110318, end: 20110603
  2. ASPIRIN [Concomitant]
     Indication: ANTICOAGULANT THERAPY
  3. ENALAPRIL MALEATE [Concomitant]
     Indication: HYPERTENSION
  4. PLENDIL [Concomitant]
     Indication: HYPERTENSION

REACTIONS (1)
  - DERMATITIS ALLERGIC [None]
